FAERS Safety Report 8826842 (Version 1)
Quarter: 2012Q4

REPORT INFORMATION
  Report Type: 
  Country: BR (occurrence: BR)
  Receive Date: 20121005
  Receipt Date: 20121005
  Transmission Date: 20130627
  Serious: Yes (Other)
  Sender: FDA-Public Use
  Company Number: BR-PFIZER INC-2012245161

PATIENT
  Age: 60 Year
  Sex: Female
  Weight: 105 kg

DRUGS (8)
  1. LYRICA [Suspect]
     Indication: PAIN
     Dosage: 75 mg (one capsule), 1x/day
     Route: 048
     Dates: start: 20120402
  2. TOPIRAMATE [Concomitant]
     Indication: MEMORY IMPAIRMENT
     Dosage: UNK
     Dates: start: 2009
  3. ENALAPRIL [Concomitant]
     Indication: HYPERTENSION
     Dosage: 20 mg, 2x/day
     Dates: start: 2009
  4. ATENSINA [Concomitant]
     Indication: HYPERTENSION
     Dosage: UNK
     Dates: start: 2009
  5. DIAMICRON [Concomitant]
     Indication: DIABETES MELLITUS
     Dosage: UNK
     Dates: start: 2009
  6. TRAMAL [Concomitant]
     Indication: PAIN
     Dosage: UNK
     Dates: start: 2009
  7. ATENOLOL [Concomitant]
     Dosage: UNK
     Dates: start: 2009
  8. EXELON [Concomitant]
     Dosage: UNK
     Dates: start: 2009

REACTIONS (2)
  - Intervertebral disc protrusion [Unknown]
  - Pain in extremity [Unknown]
